FAERS Safety Report 4747902-4 (Version None)
Quarter: 2005Q3

REPORT INFORMATION
  Report Type: 
  Country: None (occurrence: None)
  Receive Date: 20050818
  Receipt Date: 20050804
  Transmission Date: 20060218
  Serious: Yes (Death, Hospitalization)
  Sender: FDA-Public Use
  Company Number: FR-AMGEN-UK145329

PATIENT
  Age: 76 Year
  Sex: Female

DRUGS (8)
  1. KINERET [Suspect]
     Indication: POLYARTHRITIS
     Route: 058
     Dates: start: 20040615, end: 20050603
  2. OMEPRAZOLE [Concomitant]
  3. FORLAX [Concomitant]
  4. CORTANCYL [Concomitant]
  5. PLAQUENIL [Concomitant]
  6. ERGOCALCIFEROL [Concomitant]
  7. STILNOX [Concomitant]
  8. NEURONTIN [Concomitant]

REACTIONS (10)
  - CONSTIPATION [None]
  - FLATULENCE [None]
  - GENERAL PHYSICAL HEALTH DETERIORATION [None]
  - INFLAMMATION [None]
  - INTESTINAL OBSTRUCTION [None]
  - LEUKOCYTOSIS [None]
  - PYREXIA [None]
  - SEPSIS [None]
  - SEPTIC SHOCK [None]
  - VOMITING [None]
